FAERS Safety Report 7429431-2 (Version None)
Quarter: 2011Q2

REPORT INFORMATION
  Report Type: 
  Country: None (occurrence: None)
  Receive Date: 20110421
  Receipt Date: 20110411
  Transmission Date: 20111010
  Serious: Yes (Hospitalization)
  Sender: FDA-Public Use
  Company Number: FR-PFIZER INC-2011078941

PATIENT
  Age: 61 Year
  Sex: Female
  Weight: 105 kg

DRUGS (11)
  1. SYMBICORT [Concomitant]
     Indication: BRONCHITIS CHRONIC
     Dosage: UNK
     Route: 048
     Dates: start: 20070206
  2. ALDACTONE [Concomitant]
     Indication: CARDIOVASCULAR DISORDER
     Dosage: UNK
     Route: 048
     Dates: start: 20031109
  3. COMBIVENT [Concomitant]
     Indication: BRONCHITIS CHRONIC
     Dosage: 1 DF, AS NEEDED
     Route: 048
     Dates: start: 20070206
  4. LEVOTHYROX [Concomitant]
     Indication: PRIMARY HYPOTHYROIDISM
     Dosage: 100 UG, 1X/DAY
     Route: 048
     Dates: start: 20031208
  5. TOPALGIC [Concomitant]
     Indication: ANALGESIC THERAPY
     Dosage: 1 DF, 1X/DAY
     Route: 048
     Dates: start: 20031109
  6. SOMATROPIN [Suspect]
     Indication: HYPOPITUITARISM
     Dosage: 0.3 MG, 1X/DAY
     Dates: start: 20041018
  7. HYDROCORTISONE [Concomitant]
     Indication: BLOOD CORTICOTROPHIN DECREASED
     Dosage: 25 MG, 1X/DAY
     Route: 048
     Dates: start: 20031208
  8. LEVOTHYROX [Concomitant]
     Indication: BLOOD THYROID STIMULATING HORMONE DECREASED
  9. ELISOR [Concomitant]
     Indication: DYSLIPIDAEMIA
     Dosage: 20 MG, 1X/DAY
     Route: 048
     Dates: start: 20031109
  10. MOPRAL [Concomitant]
     Indication: GASTRIC DISORDER
     Dosage: UNK
     Route: 048
     Dates: start: 20031109
  11. DIFFU K [Concomitant]
     Indication: MEDICAL DIET
     Dosage: 1 DF, 1X/DAY
     Route: 048
     Dates: start: 20031109

REACTIONS (1)
  - DYSPNOEA [None]
